FAERS Safety Report 19884317 (Version 2)
Quarter: 2021Q4

REPORT INFORMATION
  Report Type: Spontaneous
  Country: CA (occurrence: CA)
  Receive Date: 20210927
  Receipt Date: 20211220
  Transmission Date: 20220303
  Serious: Yes (Hospitalization)
  Sender: FDA-Public Use
  Company Number: CA-BAUSCH-BL-2021-032717

PATIENT
  Sex: Male

DRUGS (12)
  1. BUDESONIDE [Suspect]
     Active Substance: BUDESONIDE
     Indication: Product used for unknown indication
     Dosage: 1 TIME DAILY
     Route: 065
  2. ATROVENT [Suspect]
     Active Substance: IPRATROPIUM BROMIDE
     Indication: Product used for unknown indication
     Route: 065
  3. CAYSTON [Suspect]
     Active Substance: AZTREONAM
     Indication: Product used for unknown indication
     Route: 065
  4. FORMOTEROL [Suspect]
     Active Substance: FORMOTEROL
     Indication: Product used for unknown indication
     Dosage: 1 TIME DAILY
     Route: 065
  5. MEPOLIZUMAB [Suspect]
     Active Substance: MEPOLIZUMAB
     Indication: Asthma
     Route: 042
  6. PULMICORT TURBUHALER [Suspect]
     Active Substance: BUDESONIDE
     Indication: Product used for unknown indication
     Dosage: METERED-DOSE (AEROSOL), TURBUHALER
     Route: 055
  7. PULMICORT TURBUHALER [Suspect]
     Active Substance: BUDESONIDE
     Dosage: TURBUHALER
     Route: 065
  8. ALBUTEROL SULFATE [Suspect]
     Active Substance: ALBUTEROL SULFATE
     Indication: Product used for unknown indication
     Dosage: INHALATION VAPOUR, LIQUID
     Route: 065
  9. ALBUTEROL SULFATE [Suspect]
     Active Substance: ALBUTEROL SULFATE
     Route: 065
  10. BUDESONIDE\FORMOTEROL [Suspect]
     Active Substance: BUDESONIDE\FORMOTEROL
     Indication: Product used for unknown indication
     Route: 055
  11. BUDESONIDE\FORMOTEROL [Suspect]
     Active Substance: BUDESONIDE\FORMOTEROL
     Route: 065
  12. PULMOZYME [Suspect]
     Active Substance: DORNASE ALFA
     Indication: Product used for unknown indication
     Dosage: SOLUTION INHALATION
     Route: 065

REACTIONS (8)
  - Asthma [Recovered/Resolved]
  - Wheezing [Recovered/Resolved]
  - Loss of personal independence in daily activities [Recovered/Resolved]
  - Dyspnoea [Recovered/Resolved]
  - Sleep disorder due to a general medical condition [Recovered/Resolved]
  - Sleep disorder [Recovered/Resolved]
  - Drug ineffective [Unknown]
  - Therapeutic product effect incomplete [Unknown]
